FAERS Safety Report 5285157-5 (Version None)
Quarter: 2007Q1

REPORT INFORMATION
  Report Type: 
  Country: None (occurrence: None)
  Receive Date: 20061229
  Receipt Date: 20060912
  Transmission Date: 20070707
  Serious: Yes (Other)
  Sender: FDA-Public Use
  Company Number: 2006UW17882

PATIENT

DRUGS (4)
  1. CRESTOR [Suspect]
     Dosage: 10 MG PO
     Route: 048
  2. NOVOLOG [Concomitant]
  3. LAMISIL /00992601/ [Concomitant]
  4. ATACAND [Concomitant]

REACTIONS (2)
  - HIGH DENSITY LIPOPROTEIN [None]
  - LOW DENSITY LIPOPROTEIN DECREASED [None]
